FAERS Safety Report 8264965-2 (Version None)
Quarter: 2012Q2

REPORT INFORMATION
  Report Type: 
  Country: None (occurrence: None)
  Receive Date: 20120404
  Receipt Date: 20120402
  Transmission Date: 20120825
  Serious: Yes (Hospitalization)
  Sender: FDA-Public Use
  Company Number: ADR-2011-10043

PATIENT
  Age: 32 Year
  Sex: Female

DRUGS (2)
  1. DILAUDID [Concomitant]
  2. LIORESAL [Suspect]
     Indication: MUSCLE SPASTICITY
     Dosage: 100 MCG, DAILY, INTRATH
     Route: 037

REACTIONS (5)
  - VOMITING [None]
  - DRUG WITHDRAWAL SYNDROME [None]
  - TREATMENT NONCOMPLIANCE [None]
  - MUSCLE SPASMS [None]
  - HEADACHE [None]
